FAERS Safety Report 4763503-6 (Version None)
Quarter: 2005Q3

REPORT INFORMATION
  Report Type: 
  Country: None (occurrence: None)
  Receive Date: 20050908
  Receipt Date: 20050829
  Transmission Date: 20060218
  Serious: Yes (Hospitalization)
  Sender: FDA-Public Use
  Company Number: SE-JNJFOC-20050806739

PATIENT
  Age: 30 Year
  Sex: Female

DRUGS (2)
  1. SPORANOX [Suspect]
     Indication: FUNGAL INFECTION
     Route: 065
  2. DIFLUCAN [Suspect]
     Indication: FUNGAL INFECTION
     Route: 065

REACTIONS (1)
  - PANCREATITIS [None]
